FAERS Safety Report 23868244 (Version 1)
Quarter: 2024Q2

REPORT INFORMATION
  Report Type: Spontaneous
  Country: US (occurrence: None)
  Receive Date: 20240516
  Receipt Date: 20240516
  Transmission Date: 20240716
  Serious: Yes (Other)
  Sender: FDA-Public Use
  Company Number: None

PATIENT
  Age: 64 Year
  Sex: Male
  Weight: 105.3 kg

DRUGS (12)
  1. OZEMPIC [Suspect]
     Active Substance: SEMAGLUTIDE
     Indication: Blood glucose increased
     Dosage: OTHER QUANTITY : 1 INJECTION(S);?OTHER FREQUENCY : WEEKLY;?
     Route: 058
     Dates: start: 20240416, end: 20240514
  2. REPATHA [Concomitant]
     Active Substance: EVOLOCUMAB
  3. lovustatin [Concomitant]
  4. FENOFIBRATE [Concomitant]
     Active Substance: FENOFIBRATE
  5. low dose aspirin [Concomitant]
  6. renexa [Concomitant]
  7. METFORMIN [Concomitant]
  8. HYDROCODONE [Concomitant]
  9. COENZYME Q10 [Concomitant]
     Active Substance: DIETARY SUPPLEMENT\UBIDECARENONE
  10. FISH OIL [Concomitant]
     Active Substance: FISH OIL
  11. VITAMIN D NOS [Concomitant]
     Active Substance: CHOLECALCIFEROL\ERGOCALCIFEROL
  12. Whey Protein powder [Concomitant]

REACTIONS (4)
  - Headache [None]
  - Fatigue [None]
  - Therapy change [None]
  - Abdominal pain upper [None]

NARRATIVE: CASE EVENT DATE: 20240505
